FAERS Safety Report 8399374-9 (Version None)
Quarter: 2012Q2

REPORT INFORMATION
  Report Type: 
  Country: None (occurrence: None)
  Receive Date: 20120531
  Receipt Date: 20120522
  Transmission Date: 20120825
  Serious: Yes (Hospitalization, Other)
  Sender: FDA-Public Use
  Company Number: US-BAYER-200939818NA

PATIENT
  Age: 63 Year
  Sex: Male
  Weight: 74.83 kg

DRUGS (33)
  1. MIDAZOLAM [Concomitant]
     Dosage: UNK
     Dates: start: 20070621, end: 20070621
  2. DOBUTAMINE HCL [Concomitant]
     Dosage: UNK
     Dates: start: 20070621, end: 20070621
  3. RED BLOOD CELLS [Concomitant]
     Dosage: 6 U, UNK
     Route: 042
     Dates: start: 20070621
  4. METOPROLOL TARTRATE [Concomitant]
     Dosage: 25 MG, QD
     Route: 048
  5. ASPIRIN [Concomitant]
     Dosage: 325 MG, QD
     Route: 048
  6. PAPAVERINE [Concomitant]
     Dosage: UNK
     Route: 061
     Dates: start: 20070621, end: 20070621
  7. TRASYLOL [Suspect]
     Indication: CORONARY ARTERY BYPASS
     Route: 042
     Dates: start: 20070621
  8. LISINOPRIL [Concomitant]
     Dosage: 10 MG, QD
     Route: 048
  9. IMDUR [Concomitant]
     Dosage: 30 MG, QD
     Route: 048
  10. LEVOTHYROXINE SODIUM [Concomitant]
     Dosage: UNK
     Dates: start: 19830101, end: 20040101
  11. VYTORIN [Concomitant]
     Dosage: 10 MG, QD
     Route: 048
  12. AMBIEN [Concomitant]
     Dosage: 10 MG, QD
     Route: 048
  13. ALLOPURINOL [Concomitant]
     Dosage: 100 MG, QD
     Route: 048
  14. LEVOTHYROXINE SODIUM [Concomitant]
     Dosage: 0.125 MG, QD
     Route: 048
  15. NITROGLYCERIN [Concomitant]
     Dosage: 0.4 MG, QD
     Route: 048
  16. HEPARIN [Concomitant]
     Dosage: 28 ML, UNK
     Route: 042
     Dates: start: 20070621, end: 20070621
  17. CARVEDILOL [Concomitant]
  18. PANCURONIUM BROMIDE [Concomitant]
     Dosage: UNK
     Dates: start: 20070621, end: 20070621
  19. CARDIOPLEGIA [Concomitant]
     Dosage: UNK
     Dates: start: 20070621, end: 20070621
  20. PLATELETS [Concomitant]
     Dosage: 2 U, UNK
     Route: 042
     Dates: start: 20070621
  21. TRASYLOL [Suspect]
     Indication: MITRAL VALVE REPAIR
  22. NIACIN [Concomitant]
     Dosage: 500 MG, QD
     Route: 048
  23. CEFAZOLIN [Concomitant]
     Dosage: 1 G IRRIGATION
  24. TRAMADOL HCL [Concomitant]
     Dosage: 50 MG, UNK
  25. AMIODARONE HCL [Concomitant]
     Dosage: 300 MG, UNK
     Dates: start: 20070621, end: 20070621
  26. ACTOS [Concomitant]
     Dosage: 15 MG, QD
     Route: 048
  27. SIMVASTATIN [Concomitant]
     Dosage: 80 MG, UNK
  28. MANNITOL [Concomitant]
     Dosage: UNK
     Dates: start: 20070621, end: 20070621
  29. ZOLOFT [Concomitant]
     Dosage: 100 MG, QD
     Route: 048
  30. TISSEEL KIT [Concomitant]
     Dosage: 10 ML, UNK
     Route: 061
  31. MUPIROCIN [Concomitant]
  32. PLASMA [Concomitant]
     Dosage: 2 U, UNK
     Route: 042
     Dates: start: 20070621
  33. LASIX [Concomitant]
     Dosage: UNK
     Dates: start: 20070621, end: 20070621

REACTIONS (13)
  - RENAL IMPAIRMENT [None]
  - PAIN [None]
  - FEAR [None]
  - RENAL INJURY [None]
  - EMOTIONAL DISTRESS [None]
  - PSYCHOLOGICAL TRAUMA [None]
  - UNEVALUABLE EVENT [None]
  - ANHEDONIA [None]
  - INJURY [None]
  - ANXIETY [None]
  - RENAL FAILURE [None]
  - STRESS [None]
  - DEPRESSION [None]
